FAERS Safety Report 13485879 (Version 2)
Quarter: 2017Q4

REPORT INFORMATION
  Report Type: Spontaneous
  Country: CH (occurrence: SI)
  Receive Date: 20170426
  Receipt Date: 20171108
  Transmission Date: 20180320
  Serious: Yes (Other)
  Sender: FDA-Public Use
  Company Number: CH-LPDUSPRD-20170449

PATIENT
  Age: 34 Year
  Sex: Female

DRUGS (1)
  1. FERINJECT [Suspect]
     Active Substance: FERRIC CARBOXYMALTOSE
     Dosage: 1000 MG
     Route: 042
     Dates: start: 201504

REACTIONS (5)
  - Arthralgia [Unknown]
  - Pyrexia [Unknown]
  - Exposure during pregnancy [Unknown]
  - Cervical incompetence [Unknown]
  - Myalgia [Unknown]
